FAERS Safety Report 14088606 (Version 4)
Quarter: 2018Q3

REPORT INFORMATION
  Report Type: Report from Study
  Country: None (occurrence: US)
  Receive Date: 20171013
  Receipt Date: 20180702
  Transmission Date: 20181010
  Serious: Yes (Hospitalization, Other)
  Sender: FDA-Public Use
  Company Number: US-ABBVIE-17K-163-2117385-00

PATIENT
  Age: 37 Year
  Sex: Female

DRUGS (1)
  1. HUMIRA [Suspect]
     Active Substance: ADALIMUMAB
     Indication: COLITIS ULCERATIVE
     Route: 058
     Dates: start: 20170614

REACTIONS (18)
  - Crohn^s disease [Not Recovered/Not Resolved]
  - Flatulence [Not Recovered/Not Resolved]
  - Arthralgia [Unknown]
  - Road traffic accident [Not Recovered/Not Resolved]
  - Constipation [Not Recovered/Not Resolved]
  - Skin abrasion [Not Recovered/Not Resolved]
  - Contusion [Not Recovered/Not Resolved]
  - Tremor [Recovered/Resolved]
  - Dehydration [Recovered/Resolved]
  - Arthralgia [Not Recovered/Not Resolved]
  - Drug ineffective [Not Recovered/Not Resolved]
  - Chills [Recovered/Resolved]
  - Abdominal pain [Not Recovered/Not Resolved]
  - Gastrointestinal haemorrhage [Not Recovered/Not Resolved]
  - Swelling [Not Recovered/Not Resolved]
  - Vomiting [Unknown]
  - Diarrhoea [Not Recovered/Not Resolved]
  - Muscle spasms [Unknown]

NARRATIVE: CASE EVENT DATE: 201709
